FAERS Safety Report 8982148 (Version 2)
Quarter: 2013Q1

REPORT INFORMATION
  Report Type: Spontaneous
  Country: US (occurrence: US)
  Receive Date: 20121222
  Receipt Date: 20130117
  Transmission Date: 20140127
  Serious: Yes (Hospitalization, Other)
  Sender: FDA-Public Use
  Company Number: US-009507513-1212USA007977

PATIENT
  Age: 57 Year
  Sex: Male
  Weight: 86.17 kg

DRUGS (7)
  1. VICTRELIS [Suspect]
     Dosage: 4 CAPSULES, Q8H
     Route: 048
     Dates: start: 201110, end: 201204
  2. XANAX [Concomitant]
     Dosage: UNK
  3. FUROSEMIDE [Concomitant]
     Dosage: UNK
  4. CIPROFLOXACIN [Concomitant]
     Dosage: UNK
  5. OMEPRAZOLE [Concomitant]
     Dosage: UNK
  6. SPIRONOLACT [Concomitant]
     Dosage: UNK
  7. APAP [Concomitant]
     Dosage: UNK
     Route: 048

REACTIONS (2)
  - Hepatic cancer [Unknown]
  - Loss of consciousness [Unknown]
